FAERS Safety Report 9424506 (Version 1)
Quarter: 2013Q3

REPORT INFORMATION
  Report Type: Spontaneous
  Country: JP (occurrence: JP)
  Receive Date: 20130729
  Receipt Date: 20130729
  Transmission Date: 20140515
  Serious: Yes (Other)
  Sender: FDA-Public Use
  Company Number: JP-BAYER-2013-091107

PATIENT
  Age: 65 Year
  Sex: Male

DRUGS (1)
  1. SORAFENIB (RAF KINASE INHIBITOR) [Suspect]
     Indication: HEPATIC CANCER METASTATIC
     Dosage: 400 MG DAILY
     Dates: start: 201103, end: 201103

REACTIONS (3)
  - Coma hepatic [Recovered/Resolved]
  - General physical health deterioration [Recovered/Resolved]
  - Ascites [None]
